FAERS Safety Report 7358203-2 (Version None)
Quarter: 2011Q1

REPORT INFORMATION
  Report Type: 
  Country: None (occurrence: None)
  Receive Date: 20110317
  Receipt Date: 20110310
  Transmission Date: 20110831
  Serious: Yes (Other)
  Sender: FDA-Public Use
  Company Number: US-ROCHE-734368

PATIENT
  Sex: Female
  Weight: 76.2 kg

DRUGS (2)
  1. AMNESTEEM [Suspect]
     Indication: ACNE
     Route: 065
     Dates: start: 20040509, end: 20050601
  2. ACCUTANE [Suspect]
     Indication: ACNE
     Route: 065
     Dates: start: 20001028, end: 20031001

REACTIONS (3)
  - CROHN'S DISEASE [None]
  - INTESTINAL RESECTION [None]
  - DEPRESSION [None]
